FAERS Safety Report 5311141-9 (Version None)
Quarter: 2007Q2

REPORT INFORMATION
  Report Type: 
  Country: None (occurrence: None)
  Receive Date: 20070426
  Receipt Date: 20070426
  Transmission Date: 20071010
  Serious: No
  Sender: FDA-Public Use
  Company Number: None

PATIENT
  Sex: Female
  Weight: 76.8847 kg

DRUGS (1)
  1. NORVASC [Suspect]
     Dosage: 5 MG 1 PER DAY PO
     Route: 048
     Dates: start: 20070410

REACTIONS (1)
  - RASH PRURITIC [None]
